FAERS Safety Report 6154982-0 (Version None)
Quarter: 2009Q2

REPORT INFORMATION
  Report Type: 
  Country: None (occurrence: None)
  Receive Date: 20090414
  Receipt Date: 20090407
  Transmission Date: 20091009
  Serious: Yes (Hospitalization)
  Sender: FDA-Public Use
  Company Number: US-ABBOTT-09P-163-0567221-00

PATIENT
  Sex: Female
  Weight: 68.1 kg

DRUGS (1)
  1. VICODIN [Suspect]
     Indication: MULTIPLE SCLEROSIS
     Route: 048
     Dates: start: 20060101, end: 20090301

REACTIONS (3)
  - DRUG DEPENDENCE [None]
  - OVERDOSE [None]
  - SUICIDE ATTEMPT [None]
